FAERS Safety Report 5215114-6 (Version None)
Quarter: 2007Q1

REPORT INFORMATION
  Report Type: 
  Country: None (occurrence: None)
  Receive Date: 20070122
  Receipt Date: 20070110
  Transmission Date: 20070707
  Serious: Yes (Other)
  Sender: FDA-Public Use
  Company Number: FR-PFIZER INC-2007003313

PATIENT
  Age: 27 Year
  Sex: Female

DRUGS (2)
  1. NEURONTIN [Suspect]
     Dosage: DAILY DOSE:2400MG
     Route: 048
  2. PRAZEPAM [Suspect]
     Dosage: DAILY DOSE:10MG
     Route: 048

REACTIONS (1)
  - ABORTION SPONTANEOUS [None]
